FAERS Safety Report 11140932 (Version 1)
Quarter: 2015Q2

REPORT INFORMATION
  Report Type: Spontaneous
  Country: GB (occurrence: GB)
  Receive Date: 20150527
  Receipt Date: 20150527
  Transmission Date: 20150821
  Serious: Yes (Other)
  Sender: FDA-Public Use
  Company Number: GB-CIPLA LTD.-2015GB04151

PATIENT

DRUGS (3)
  1. LEVETIRACETAM. [Suspect]
     Active Substance: LEVETIRACETAM
     Indication: JUVENILE MYOCLONIC EPILEPSY
     Dosage: 2 G, QD
     Route: 065
  2. LAMOTRIGINE. [Suspect]
     Active Substance: LAMOTRIGINE
     Indication: JUVENILE MYOCLONIC EPILEPSY
     Dosage: 400 MG, DAILY
     Route: 065
  3. VALPROATE [Suspect]
     Active Substance: VALPROATE SODIUM
     Indication: JUVENILE MYOCLONIC EPILEPSY
     Dosage: 1.2 G, QD

REACTIONS (2)
  - Self-injurious ideation [Unknown]
  - Treatment failure [Unknown]
